FAERS Safety Report 26208987 (Version 1)
Quarter: 2025Q4

REPORT INFORMATION
  Report Type: Spontaneous
  Country: US (occurrence: None)
  Receive Date: 20251227
  Receipt Date: 20251227
  Transmission Date: 20260118
  Serious: Yes (Hospitalization)
  Sender: FDA-CTU
  Company Number: None

PATIENT
  Age: 3 Year
  Sex: Male
  Weight: 12.3 kg

DRUGS (2)
  1. CISPLATIN [Suspect]
     Active Substance: CISPLATIN
     Dates: end: 20251113
  2. ETOPOSIDE [Suspect]
     Active Substance: ETOPOSIDE
     Dates: end: 20251113

REACTIONS (9)
  - Dyspnoea [None]
  - Use of accessory respiratory muscles [None]
  - Grunting [None]
  - Fatigue [None]
  - Hypoxia [None]
  - Pleural effusion [None]
  - Abdominal distension [None]
  - Ascites [None]
  - Abdominal neoplasm [None]

NARRATIVE: CASE EVENT DATE: 20251113
